FAERS Safety Report 6196042-9 (Version None)
Quarter: 2009Q2

REPORT INFORMATION
  Report Type: 
  Country: None (occurrence: None)
  Receive Date: 20090520
  Receipt Date: 20090511
  Transmission Date: 20091009
  Serious: Yes (Other)
  Sender: FDA-Public Use
  Company Number: DE-PFIZER INC-2009168576

PATIENT
  Age: 58 Year

DRUGS (1)
  1. ZYVOXID [Suspect]

REACTIONS (1)
  - TRANSIENT ISCHAEMIC ATTACK [None]
